FAERS Safety Report 23580251 (Version 1)
Quarter: 2024Q1

REPORT INFORMATION
  Report Type: Spontaneous
  Country: US (occurrence: US)
  Receive Date: 20240229
  Receipt Date: 20240229
  Transmission Date: 20240409
  Serious: Yes (Other)
  Sender: FDA-Public Use
  Company Number: US-NOVITIUMPHARMA-2024USNVP00188

PATIENT
  Age: 45 Year
  Sex: Female

DRUGS (7)
  1. PREDNISONE [Suspect]
     Active Substance: PREDNISONE
     Indication: Proteinuria
  2. PREDNISONE [Suspect]
     Active Substance: PREDNISONE
     Indication: Chronic kidney disease
  3. PREDNISONE [Suspect]
     Active Substance: PREDNISONE
     Indication: Focal segmental glomerulosclerosis
  4. TACROLIMUS [Concomitant]
     Active Substance: TACROLIMUS
     Indication: Proteinuria
  5. TACROLIMUS [Concomitant]
     Active Substance: TACROLIMUS
     Indication: Chronic kidney disease
  6. TACROLIMUS [Concomitant]
     Active Substance: TACROLIMUS
     Indication: Focal segmental glomerulosclerosis
  7. LISINOPRIL [Concomitant]
     Active Substance: LISINOPRIL
     Indication: Proteinuria

REACTIONS (1)
  - Acute kidney injury [Recovering/Resolving]
